FAERS Safety Report 5610199-7 (Version None)
Quarter: 2008Q1

REPORT INFORMATION
  Report Type: 
  Country: None (occurrence: None)
  Receive Date: 20080131
  Receipt Date: 20080122
  Transmission Date: 20080703
  Serious: Yes (Other)
  Sender: FDA-Public Use
  Company Number: US-PFIZER INC-2008008828

PATIENT
  Sex: Male
  Weight: 102.1 kg

DRUGS (3)
  1. CHANTIX [Suspect]
     Indication: SMOKING CESSATION THERAPY
     Route: 048
  2. TOPROL-XL [Concomitant]
     Indication: HYPERTENSION
  3. PROPYLTHIOURACIL [Concomitant]
     Indication: HYPERTHYROIDISM

REACTIONS (9)
  - ANGER [None]
  - DIARRHOEA [None]
  - MALAISE [None]
  - MIDDLE INSOMNIA [None]
  - NERVOUSNESS [None]
  - NIGHTMARE [None]
  - PARANOIA [None]
  - STOMACH DISCOMFORT [None]
  - VOMITING [None]
